FAERS Safety Report 10638323 (Version 2)
Quarter: 2015Q1

REPORT INFORMATION
  Report Type: Spontaneous
  Country: CA (occurrence: CA)
  Receive Date: 20141208
  Receipt Date: 20150317
  Transmission Date: 20150720
  Serious: Yes (Hospitalization, Other)
  Sender: FDA-Public Use
  Company Number: CA-GLAXOSMITHKLINE-CA2014GSK031642

PATIENT
  Age: 68 Year
  Sex: Male

DRUGS (9)
  1. RITUXAN [Concomitant]
     Active Substance: RITUXIMAB
     Dosage: 500 MG, Z
     Route: 042
  2. FLURBIPROFEN. [Suspect]
     Active Substance: FLURBIPROFEN
     Indication: PRODUCT USED FOR UNKNOWN INDICATION
     Dosage: 300 MG, QD
  3. METHOTREXATE [Concomitant]
     Active Substance: METHOTREXATE
     Dosage: 3.5 MG, WE
  4. ADVAIR DISKUS [Suspect]
     Active Substance: FLUTICASONE PROPIONATE\SALMETEROL XINAFOATE
     Indication: CHRONIC OBSTRUCTIVE PULMONARY DISEASE
     Dosage: 1 PUFF(S), BID
     Route: 055
     Dates: start: 201406
  5. ATROVENT [Concomitant]
     Active Substance: IPRATROPIUM BROMIDE
  6. RESCUE REMEDY [Concomitant]
     Active Substance: CLEMATIS VITALBA FLOWER\HELIANTHEMUM NUMMULARIUM FLOWER\IMPATIENS GLANDULIFERA FLOWER\ORNITHOGALUM UMBELLATUM\PRUNUS CERASIFERA FLOWER
  7. TUDORZA PRESSAIR [Concomitant]
     Active Substance: ACLIDINIUM BROMIDE
  8. ADVAIR HFA [Suspect]
     Active Substance: FLUTICASONE PROPIONATE\SALMETEROL XINAFOATE
     Indication: CHRONIC OBSTRUCTIVE PULMONARY DISEASE
     Dosage: UNK
     Dates: end: 201406
  9. ADVAIR HFA [Suspect]
     Active Substance: FLUTICASONE PROPIONATE\SALMETEROL XINAFOATE
     Dosage: UNK

REACTIONS (15)
  - Secretion discharge [Not Recovered/Not Resolved]
  - Pleural effusion [Recovered/Resolved]
  - Dysphagia [Not Recovered/Not Resolved]
  - Drug ineffective [Unknown]
  - Pneumonia [Unknown]
  - Heart rate increased [Unknown]
  - Pericardial effusion [Recovered/Resolved]
  - Blood pressure increased [Unknown]
  - Dysphonia [Not Recovered/Not Resolved]
  - Sinus disorder [Unknown]
  - Candida infection [Not Recovered/Not Resolved]
  - Dyspnoea [Recovered/Resolved]
  - Chronic obstructive pulmonary disease [Unknown]
  - Cough [Unknown]
  - Haemorrhage [Recovered/Resolved]

NARRATIVE: CASE EVENT DATE: 201412
